FAERS Safety Report 9481906 (Version 1)
Quarter: 2013Q3

REPORT INFORMATION
  Report Type: Spontaneous
  Country: CN (occurrence: CN)
  Receive Date: 20130828
  Receipt Date: 20130828
  Transmission Date: 20140515
  Serious: Yes (Other)
  Sender: FDA-Public Use
  Company Number: CN-BRISTOL-MYERS SQUIBB COMPANY-19214683

PATIENT
  Age: 48 Year
  Sex: Female
  Weight: 50 kg

DRUGS (3)
  1. TAXOL INJ [Suspect]
     Indication: GASTRIC CANCER
     Dosage: DAY1
     Route: 042
     Dates: start: 20120726, end: 20120726
  2. OXALIPLATIN [Suspect]
     Indication: GASTRIC CANCER
     Dosage: INJ(DAY 1)
     Route: 042
     Dates: start: 20120726, end: 20120726
  3. CAPECITABINE [Suspect]
     Indication: GASTRIC CANCER
     Dosage: 1DF=3TABS(DAY1-DAY14)
     Route: 048
     Dates: start: 20120726, end: 20120726

REACTIONS (1)
  - Proteinuria [Recovering/Resolving]
